FAERS Safety Report 10906140 (Version 3)
Quarter: 2015Q2

REPORT INFORMATION
  Report Type: Report from Study
  Country: AU (occurrence: AU)
  Receive Date: 20150311
  Receipt Date: 20150428
  Transmission Date: 20150821
  Serious: Yes (Hospitalization)
  Sender: FDA-Public Use
  Company Number: AU-GLAXOSMITHKLINE INC.-AU2015GSK032263

PATIENT
  Age: 63 Year
  Sex: Male

DRUGS (8)
  1. TRAMETINIB [Suspect]
     Active Substance: TRAMETINIB
     Indication: METASTATIC MALIGNANT MELANOMA
     Dosage: 2 MG, QD
     Dates: start: 20131126, end: 20140119
  2. DABRAFENIB [Suspect]
     Active Substance: DABRAFENIB
     Indication: METASTATIC MALIGNANT MELANOMA
     Dosage: 250 MG, QD
     Dates: start: 20131126, end: 20140122
  3. TRAMETINIB [Suspect]
     Active Substance: TRAMETINIB
     Dosage: 1 MG, QD
     Dates: start: 20140401, end: 20140414
  4. TRAMETINIB [Suspect]
     Active Substance: TRAMETINIB
     Dosage: 1 MG, QD
     Dates: start: 20140430, end: 20140617
  5. TRAMETINIB [Suspect]
     Active Substance: TRAMETINIB
     Dosage: 1 MG, QD
     Dates: start: 20140211, end: 20140304
  6. IPILIMUMAB [Suspect]
     Active Substance: IPILIMUMAB
  7. DABRAFENIB [Suspect]
     Active Substance: DABRAFENIB
     Dosage: 100 MG, QD
     Dates: start: 20140218, end: 20140224
  8. TRAMETINIB [Suspect]
     Active Substance: TRAMETINIB
     Dosage: 1.5 MG, QD
     Dates: start: 20140305, end: 20140331

REACTIONS (3)
  - Lichenoid keratosis [Recovered/Resolved]
  - Rash maculo-papular [Recovered/Resolved]
  - Rash [Recovered/Resolved]

NARRATIVE: CASE EVENT DATE: 20140117
